FAERS Safety Report 22528761 (Version 1)
Quarter: 2023Q2

REPORT INFORMATION
  Report Type: Other
  Country: None (occurrence: US)
  Receive Date: 20230607
  Receipt Date: 20230607
  Transmission Date: 20230722
  Serious: Yes (Death)
  Sender: FDA-Public Use
  Company Number: US-OrBion Pharmaceuticals Private Limited-2142407

PATIENT
  Age: 61 Year
  Sex: Female

DRUGS (4)
  1. AMLODIPINE BESYLATE [Suspect]
     Active Substance: AMLODIPINE BESYLATE
     Route: 065
  2. ATENOLOL [Suspect]
     Active Substance: ATENOLOL
     Route: 065
  3. HYDROCHLOROTHIAZIDE [Suspect]
     Active Substance: HYDROCHLOROTHIAZIDE
     Route: 065
  4. SIMVASTATIN [Suspect]
     Active Substance: SIMVASTATIN
     Route: 065

REACTIONS (7)
  - Ejection fraction abnormal [Fatal]
  - Completed suicide [Fatal]
  - Bradycardia [Fatal]
  - Respiratory failure [Fatal]
  - Hypotension [Fatal]
  - Overdose [Fatal]
  - Thrombosis [Fatal]
